FAERS Safety Report 25047441 (Version 2)
Quarter: 2025Q2

REPORT INFORMATION
  Report Type: Spontaneous
  Country: JP (occurrence: JP)
  Receive Date: 20250306
  Receipt Date: 20250612
  Transmission Date: 20250717
  Serious: Yes (Other)
  Sender: PFIZER
  Company Number: JP-PFIZER INC-PV202500026393

PATIENT
  Age: 82 Year
  Sex: Male
  Weight: 47.8 kg

DRUGS (13)
  1. METHOTREXATE SODIUM [Suspect]
     Active Substance: METHOTREXATE SODIUM
     Indication: Brain neoplasm
     Dates: start: 20250118
  2. METHOTREXATE SODIUM [Suspect]
     Active Substance: METHOTREXATE SODIUM
     Dosage: ESTIMATED TO BE ABOUT 1/4 TO 1/8 OF THE PLANNED DOSE (ABOUT 550-1100MG)
     Route: 041
     Dates: start: 20250119, end: 20250119
  3. DEXAMETHASONE SODIUM PHOSPHATE [Concomitant]
     Active Substance: DEXAMETHASONE SODIUM PHOSPHATE
  4. DIAMOX SEQUELS [Concomitant]
     Active Substance: ACETAZOLAMIDE
  5. FAMOTIDINE [Concomitant]
     Active Substance: FAMOTIDINE
  6. FYCOMPA [Concomitant]
     Active Substance: PERAMPANEL
  7. GRANISETRON HYDROCHLORIDE [Concomitant]
     Active Substance: GRANISETRON HYDROCHLORIDE
     Route: 042
  8. MEYLON [Concomitant]
     Active Substance: SODIUM BICARBONATE
  9. ONCOVIN [Concomitant]
     Active Substance: VINCRISTINE SULFATE
     Dates: start: 20250119
  10. PROCARBAZINE HYDROCHLORIDE [Concomitant]
     Active Substance: PROCARBAZINE HYDROCHLORIDE
     Dates: start: 20250118
  11. PROCARBAZINE HYDROCHLORIDE [Concomitant]
     Active Substance: PROCARBAZINE HYDROCHLORIDE
     Route: 048
     Dates: start: 20250119
  12. RITUXIMAB [Concomitant]
     Active Substance: RITUXIMAB
     Dates: start: 20250118
  13. VINCRISTINE [Concomitant]
     Active Substance: VINCRISTINE
     Dates: start: 20250118

REACTIONS (6)
  - Blood pressure decreased [Recovered/Resolved]
  - Acute kidney injury [Recovering/Resolving]
  - Oxygen saturation decreased [Unknown]
  - Shock [Recovering/Resolving]
  - Drug clearance decreased [Recovering/Resolving]
  - Off label use [Unknown]

NARRATIVE: CASE EVENT DATE: 20250119
